FAERS Safety Report 25646999 (Version 1)
Quarter: 2025Q3

REPORT INFORMATION
  Report Type: Spontaneous
  Country: EU (occurrence: EU)
  Receive Date: 20250805
  Receipt Date: 20250805
  Transmission Date: 20251021
  Serious: Yes (Other)
  Sender: AMGEN
  Company Number: EU-AMGEN-FRASP2025154942

PATIENT
  Sex: Female

DRUGS (1)
  1. REPATHA [Suspect]
     Active Substance: EVOLOCUMAB
     Indication: Type IIa hyperlipidaemia
     Dosage: 140 MILLIGRAM, QMO
     Route: 065
     Dates: start: 202501

REACTIONS (4)
  - Stent placement [Unknown]
  - Cardiac disorder [Unknown]
  - Dyspepsia [Unknown]
  - Off label use [Unknown]
